FAERS Safety Report 22657664 (Version 1)
Quarter: 2023Q2

REPORT INFORMATION
  Report Type: Report from Study
  Country: GB (occurrence: GB)
  Receive Date: 20230630
  Receipt Date: 20230630
  Transmission Date: 20230721
  Serious: Yes (Other)
  Sender: FDA-Public Use
  Company Number: GB-002147023-NVSC2023GB148922

PATIENT
  Sex: Female

DRUGS (2)
  1. KESIMPTA [Suspect]
     Active Substance: OFATUMUMAB
     Indication: Relapsing-remitting multiple sclerosis
     Dosage: UNK UNK, QW (STARTING DOSES: ONCE A WEEK FOR 3 WEEKS THEN SKIP A WEEK AND THEN ONE MORE DOSE THE WEE
     Route: 058
     Dates: start: 20230620
  2. KESIMPTA [Suspect]
     Active Substance: OFATUMUMAB
     Dosage: UNK, QW (SECOND INJECTION)
     Route: 065

REACTIONS (9)
  - Hallucination [Unknown]
  - Somnolence [Unknown]
  - Hyperhidrosis [Unknown]
  - Nightmare [Unknown]
  - Menstrual disorder [Unknown]
  - Muscle twitching [Recovered/Resolved]
  - Pain [Unknown]
  - Chills [Unknown]
  - Fatigue [Unknown]
